FAERS Safety Report 10026071 (Version 1)
Quarter: 2014Q1

REPORT INFORMATION
  Report Type: Spontaneous
  Country: US (occurrence: US)
  Receive Date: 20140320
  Receipt Date: 20140320
  Transmission Date: 20141002
  Serious: No
  Sender: FDA-Public Use
  Company Number: US-009507513-1403USA007178

PATIENT
  Age: 37 Year
  Sex: 0
  Weight: 63.39 kg

DRUGS (1)
  1. NEXPLANON [Suspect]
     Dosage: UNK
     Route: 059
     Dates: start: 20140307

REACTIONS (2)
  - Device difficult to use [Unknown]
  - No adverse event [Unknown]
